FAERS Safety Report 4663560-1 (Version None)
Quarter: 2005Q2

REPORT INFORMATION
  Report Type: 
  Country: None (occurrence: None)
  Receive Date: 20050511
  Receipt Date: 20050228
  Transmission Date: 20051028
  Serious: Yes (Other)
  Sender: FDA-Public Use
  Company Number: 396938

PATIENT
  Age: 52 Year
  Sex: Female

DRUGS (4)
  1. PEGASYS [Suspect]
     Indication: HEPATITIS C VIRUS
     Dosage: 180 MCG 1 PER 1 WEEK, SUBCUTANEOUS
     Route: 058
     Dates: start: 20040715, end: 20050129
  2. COPEGUS [Suspect]
     Indication: HEPATITIS C VIRUS
     Dosage: 1000 MG DAILY ORAL
     Route: 048
     Dates: start: 20040715, end: 20050226
  3. LOVASTATIN [Concomitant]
  4. NEXIUM [Concomitant]

REACTIONS (2)
  - ANAEMIA [None]
  - HYPOTHYROIDISM [None]
